FAERS Safety Report 6263115 (Version 11)
Quarter: 2013Q4

REPORT INFORMATION
  Report Type: Spontaneous
  Country: US (occurrence: US)
  Receive Date: 20070316
  Receipt Date: 20131030
  Transmission Date: 20140711
  Serious: Yes (Death, Disabling, Other)
  Sender: FDA-Public Use
  Company Number: PHEH2007US02901

PATIENT
  Sex: Female
  Weight: 68.03 kg

DRUGS (9)
  1. AREDIA [Suspect]
     Dosage: 90 MG, UNK
     Route: 042
  2. ZOMETA [Suspect]
     Dosage: 4 MG, UNK
     Route: 042
  3. FOSAMAX [Suspect]
  4. ATENOLOL [Concomitant]
  5. COZAAR [Concomitant]
  6. MAXZIDE [Concomitant]
  7. DECADRON                                /NET/ [Concomitant]
  8. XELODA [Concomitant]
  9. ZESTRIL [Concomitant]

REACTIONS (65)
  - Death [Fatal]
  - Osteonecrosis of jaw [Unknown]
  - General physical health deterioration [Unknown]
  - Pain [Unknown]
  - Anxiety [Unknown]
  - Decreased interest [Unknown]
  - Metastases to central nervous system [Recovering/Resolving]
  - Metastases to bone marrow [Recovering/Resolving]
  - Disease recurrence [Unknown]
  - Cardiac disorder [Unknown]
  - Stomatitis [Unknown]
  - Visual acuity reduced [Unknown]
  - Tooth fracture [Unknown]
  - Cyst [Unknown]
  - Swelling [Unknown]
  - Thrombocytopenia [Unknown]
  - Cholelithiasis [Unknown]
  - Diverticulum [Unknown]
  - Dizziness [Unknown]
  - Nasal oedema [Unknown]
  - Oedema mucosal [Unknown]
  - Cataract [Unknown]
  - Presbyopia [Unknown]
  - Osteoarthritis [Unknown]
  - Exostosis [Unknown]
  - Tendonitis [Unknown]
  - Tendon calcification [Unknown]
  - Renal cyst [Unknown]
  - Pericardial effusion [Unknown]
  - Myopia [Unknown]
  - Pleural effusion [Unknown]
  - Urinary incontinence [Unknown]
  - Herpes zoster [Unknown]
  - Nephropathy [Unknown]
  - Cardiomyopathy [Unknown]
  - Metastases to liver [Unknown]
  - Metastases to bladder [Unknown]
  - Metastases to lymph nodes [Unknown]
  - Asthma [Unknown]
  - Vitamin D deficiency [Unknown]
  - Aortic valve incompetence [Unknown]
  - Mitral valve incompetence [Unknown]
  - Pulmonary valve incompetence [Unknown]
  - Dilatation atrial [Unknown]
  - Cardiac failure [Unknown]
  - Hydronephrosis [Unknown]
  - Pleural fibrosis [Unknown]
  - Abdominal pain upper [Unknown]
  - Constipation [Unknown]
  - Diarrhoea [Unknown]
  - Hilar lymphadenopathy [Unknown]
  - Lymphadenopathy mediastinal [Unknown]
  - Hydroureter [Unknown]
  - Osteopenia [Unknown]
  - Hyperlipidaemia [Unknown]
  - Oral pain [Unknown]
  - Hepatic cyst [Unknown]
  - Hepatic lesion [Unknown]
  - Cellulitis [Unknown]
  - Pathological fracture [Unknown]
  - Hypercholesterolaemia [Unknown]
  - Bursitis [Unknown]
  - Tachycardia [Unknown]
  - Polyneuropathy [Unknown]
  - Amnesia [Unknown]
